FAERS Safety Report 8853055 (Version 1)
Quarter: 2012Q4

REPORT INFORMATION
  Report Type: 
  Country: BR (occurrence: BR)
  Receive Date: 20121022
  Receipt Date: 20121022
  Transmission Date: 20130627
  Serious: Yes (Other)
  Sender: FDA-Public Use
  Company Number: BR-BAYER-2012-110008

PATIENT
  Age: 17 Year
  Sex: Female
  Weight: 67.12 kg

DRUGS (2)
  1. CIPRO [Suspect]
     Indication: PYELONEPHRITIS
     Dosage: 1 DF, BID
     Route: 048
     Dates: start: 20121012
  2. MERCILON [Concomitant]
     Indication: CONTRACEPTION
     Route: 048

REACTIONS (1)
  - Vaginal haemorrhage [Not Recovered/Not Resolved]
